FAERS Safety Report 6501589-9 (Version None)
Quarter: 2009Q4

REPORT INFORMATION
  Report Type: 
  Country: None (occurrence: None)
  Receive Date: 20091216
  Receipt Date: 20090701
  Transmission Date: 20100525
  Serious: No
  Sender: FDA-Public Use
  Company Number: US-BRISTOL-MYERS SQUIBB COMPANY-14686778

PATIENT
  Age: 21 Year
  Sex: Male

DRUGS (2)
  1. ABILIFY [Suspect]
     Route: 048
     Dates: start: 20090621
  2. ZOLOFT [Concomitant]
     Dosage: ORAL SOLUTION
     Route: 048

REACTIONS (3)
  - CONTUSION [None]
  - MUSCULAR WEAKNESS [None]
  - PYREXIA [None]
